FAERS Safety Report 6760782-0 (Version None)
Quarter: 2010Q2

REPORT INFORMATION
  Report Type: 
  Country: None (occurrence: None)
  Receive Date: 20100608
  Receipt Date: 20100527
  Transmission Date: 20101027
  Serious: Yes (Other)
  Sender: FDA-Public Use
  Company Number: AU-GILEAD-E2B_00000735

PATIENT
  Sex: Female

DRUGS (1)
  1. VOLIBRIS [Suspect]
     Indication: DRUG USE FOR UNKNOWN INDICATION
     Dosage: 2.5MG PER DAY
     Route: 065

REACTIONS (5)
  - ANXIETY [None]
  - HYPOMANIA [None]
  - INSOMNIA [None]
  - MEDICATION ERROR [None]
  - PRESSURE OF SPEECH [None]
